FAERS Safety Report 5321890-4 (Version None)
Quarter: 2007Q2

REPORT INFORMATION
  Report Type: 
  Country: None (occurrence: None)
  Receive Date: 20070510
  Receipt Date: 20070427
  Transmission Date: 20071010
  Serious: Yes (Hospitalization)
  Sender: FDA-Public Use
  Company Number: FR-GENENTECH-241125

PATIENT
  Sex: Female
  Weight: 45 kg

DRUGS (3)
  1. BEVACIZUMAB [Suspect]
     Indication: NON-SMALL CELL LUNG CANCER
     Dosage: 15 MG/KG, Q3W
     Route: 042
     Dates: start: 20070403
  2. CISPLATIN [Suspect]
     Indication: NON-SMALL CELL LUNG CANCER
     Dosage: 120 MG, UNK
     Route: 042
     Dates: start: 20070403, end: 20070426
  3. GEMCITABINE HCL [Suspect]
     Indication: NON-SMALL CELL LUNG CANCER
     Dosage: 1900 MG, UNK
     Route: 042
     Dates: start: 20070403

REACTIONS (2)
  - ANAEMIA [None]
  - BLOOD CREATININE INCREASED [None]
